FAERS Safety Report 23441956 (Version 1)
Quarter: 2024Q1

REPORT INFORMATION
  Report Type: Spontaneous
  Country: AT (occurrence: AT)
  Receive Date: 20240125
  Receipt Date: 20240125
  Transmission Date: 20240410
  Serious: Yes (Other)
  Sender: FDA-Public Use
  Company Number: AT-ASTELLAS-2024US001230

PATIENT
  Age: 72 Year
  Sex: Male

DRUGS (7)
  1. EDOXABAN [Suspect]
     Active Substance: EDOXABAN
     Indication: Product used for unknown indication
     Dosage: 60 MG, QD
     Route: 048
     Dates: start: 2020
  2. ENZALUTAMIDE [Suspect]
     Active Substance: ENZALUTAMIDE
     Indication: Product used for unknown indication
     Dosage: 160 MG, QD
     Route: 048
     Dates: start: 202003, end: 202005
  3. DEXAMETHASONE [Suspect]
     Active Substance: DEXAMETHASONE
     Indication: Product used for unknown indication
     Dosage: 4 MG (1X1/2 (SEQUENTIALLY LOW DOSE)
     Route: 065
     Dates: start: 202301, end: 202307
  4. DEGARELIX [Suspect]
     Active Substance: DEGARELIX
     Indication: Product used for unknown indication
     Dosage: UNK
     Route: 065
     Dates: start: 202301, end: 202307
  5. VINORELBINE [Suspect]
     Active Substance: VINORELBINE TARTRATE
     Indication: Product used for unknown indication
     Dosage: 50 MG, 3 TIMES PER 1WK (50 MG, THRICE WEEKLY)
     Route: 048
     Dates: start: 202307
  6. CABAZITAXEL [Suspect]
     Active Substance: CABAZITAXEL
     Indication: Product used for unknown indication
     Dosage: 20 MG/M2, ONCE EVERY 3 WK
     Route: 065
     Dates: start: 202106, end: 202201
  7. DOCETAXEL [Suspect]
     Active Substance: DOCETAXEL\DOCETAXEL ANHYDROUS
     Indication: Product used for unknown indication
     Dosage: 50 MG/M2, ONCE EVERY 2 WK (4 CYCLES)
     Route: 065
     Dates: start: 202007, end: 202011

REACTIONS (18)
  - Postrenal failure [Unknown]
  - Malignant neoplasm progression [Unknown]
  - Urinary retention [Unknown]
  - Joint dislocation [Unknown]
  - Radius fracture [Unknown]
  - Pyelonephritis [Unknown]
  - Polyneuropathy [Unknown]
  - Fall [Unknown]
  - Erosive duodenitis [Unknown]
  - Duodenal ulcer [Unknown]
  - Melaena [Unknown]
  - Haematemesis [Unknown]
  - Weight increased [Unknown]
  - Chest pain [Unknown]
  - Onycholysis [Unknown]
  - Pruritus [Unknown]
  - Karnofsky scale abnormal [Unknown]
  - Fatigue [Unknown]

NARRATIVE: CASE EVENT DATE: 20200601
